FAERS Safety Report 14986582 (Version 2)
Quarter: 2020Q2

REPORT INFORMATION
  Report Type: Report from Study
  Country: CA (occurrence: CA)
  Receive Date: 20180608
  Receipt Date: 20200414
  Transmission Date: 20200713
  Serious: Yes (Hospitalization, Other)
  Sender: FDA-Public Use
  Company Number: CA-AMGEN-CANSL2018075254

PATIENT
  Age: 84 Year
  Sex: Female

DRUGS (1)
  1. PROLIA [Suspect]
     Active Substance: DENOSUMAB
     Indication: PRODUCT USED FOR UNKNOWN INDICATION
     Dosage: 60 MILLIGRAM PER MILLILITRE
     Route: 065
     Dates: start: 20131101

REACTIONS (5)
  - Head injury [Unknown]
  - Fall [Unknown]
  - Cerebrovascular accident [Recovering/Resolving]
  - Memory impairment [Unknown]
  - Dementia [Unknown]

NARRATIVE: CASE EVENT DATE: 2017
